FAERS Safety Report 7542902-3 (Version None)
Quarter: 2011Q2

REPORT INFORMATION
  Report Type: 
  Country: None (occurrence: None)
  Receive Date: 20110613
  Receipt Date: 20110531
  Transmission Date: 20111010
  Serious: Yes (Other)
  Sender: FDA-Public Use
  Company Number: PHHY2011SE47453

PATIENT
  Sex: Female

DRUGS (3)
  1. PULMICORT [Concomitant]
  2. ZOLEDRONIC ACID [Suspect]
     Indication: OSTEOPOROSIS
     Dosage: 5 MG,
     Route: 042
  3. KALCIPOS [Concomitant]

REACTIONS (6)
  - HYPERPLASIA [None]
  - IMPAIRED HEALING [None]
  - DRY MOUTH [None]
  - FOREIGN BODY REACTION [None]
  - ORAL DISORDER [None]
  - TONGUE DISORDER [None]
